FAERS Safety Report 4661324-6 (Version None)
Quarter: 2005Q2

REPORT INFORMATION
  Report Type: 
  Country: None (occurrence: None)
  Receive Date: 20050427
  Receipt Date: 20050310
  Transmission Date: 20051028
  Serious: No
  Sender: FDA-Public Use
  Company Number: WAES 0503USA01648

PATIENT
  Sex: Female

DRUGS (1)
  1. EMEND [Suspect]
     Dosage: SEE IMAGE
     Route: 048

REACTIONS (2)
  - ABDOMINAL PAIN [None]
  - HAEMATURIA [None]
